FAERS Safety Report 7548569-2 (Version None)
Quarter: 2011Q2

REPORT INFORMATION
  Report Type: 
  Country: None (occurrence: None)
  Receive Date: 20110615
  Receipt Date: 20110601
  Transmission Date: 20111010
  Serious: Yes (Other)
  Sender: FDA-Public Use
  Company Number: FR-SANOFI-AVENTIS-2011SA017057

PATIENT
  Age: 70 Year
  Sex: Male
  Weight: 88 kg

DRUGS (8)
  1. POTASSIUM CHLORIDE [Concomitant]
     Indication: SUPPLEMENTATION THERAPY
     Route: 048
  2. VERAPAMIL [Concomitant]
     Route: 048
     Dates: end: 20110202
  3. AMLODIPINE [Concomitant]
     Route: 048
     Dates: start: 20110202
  4. FUROSEMIDE [Concomitant]
     Route: 048
  5. PREVISCAN [Concomitant]
     Indication: ATRIAL FIBRILLATION
     Route: 048
  6. APROVEL [Concomitant]
     Route: 048
  7. MULTAQ [Suspect]
     Route: 048
     Dates: start: 20110101, end: 20110215
  8. LEVOTHYROXINE SODIUM [Concomitant]
     Indication: HYPOTHYROIDISM
     Route: 048

REACTIONS (2)
  - BLOOD CREATININE INCREASED [None]
  - RENAL FAILURE ACUTE [None]
